FAERS Safety Report 9449980 (Version 2)
Quarter: 2013Q3

REPORT INFORMATION
  Report Type: Report from Study
  Country: US (occurrence: US)
  Receive Date: 20130809
  Receipt Date: 20130819
  Transmission Date: 20140515
  Serious: Yes (Death)
  Sender: FDA-Public Use
  Company Number: PHEH2013US016888

PATIENT
  Age: 69 Year
  Sex: Male

DRUGS (2)
  1. MYFORTIC [Suspect]
     Dosage: 720 MG, BID
     Route: 048
  2. NEORAL [Concomitant]
     Dosage: 100 MG, BID

REACTIONS (1)
  - Cardiac arrest [Fatal]
